FAERS Safety Report 16388174 (Version 1)
Quarter: 2019Q2

REPORT INFORMATION
  Report Type: Spontaneous
  Country: IT (occurrence: IT)
  Receive Date: 20190604
  Receipt Date: 20190604
  Transmission Date: 20190711
  Serious: Yes (Other)
  Sender: FDA-Public Use
  Company Number: PHHY2019IT126231

PATIENT
  Age: 31 Year
  Sex: Female

DRUGS (4)
  1. RISPERDAL [Suspect]
     Active Substance: RISPERIDONE
     Indication: INTENTIONAL SELF-INJURY
     Dosage: 2 MG, UNK
     Route: 048
  2. TAVANIC [Suspect]
     Active Substance: LEVOFLOXACIN
     Indication: INTENTIONAL SELF-INJURY
     Dosage: UNK
     Route: 048
  3. CORTISONE [Suspect]
     Active Substance: CORTISONE\HYDROCORTISONE
     Indication: INTENTIONAL SELF-INJURY
     Dosage: UNK
     Route: 048
  4. ALLOPURINOL. [Suspect]
     Active Substance: ALLOPURINOL
     Indication: INTENTIONAL SELF-INJURY
     Dosage: UNK
     Route: 048

REACTIONS (1)
  - Intentional self-injury [Unknown]

NARRATIVE: CASE EVENT DATE: 20100131
